FAERS Safety Report 9431984 (Version 2)
Quarter: 2013Q3

REPORT INFORMATION
  Report Type: Spontaneous
  Country: NO (occurrence: NO)
  Receive Date: 20130731
  Receipt Date: 20130830
  Transmission Date: 20140515
  Serious: Yes (Hospitalization, Other)
  Sender: FDA-Public Use
  Company Number: NO-JNJFOC-20130714404

PATIENT
  Age: 72 Year
  Sex: Male
  Weight: 83.5 kg

DRUGS (5)
  1. XARELTO [Suspect]
     Indication: EMBOLISM VENOUS
     Route: 048
     Dates: start: 20130610, end: 20130625
  2. XARELTO [Suspect]
     Indication: DEEP VEIN THROMBOSIS
     Route: 048
     Dates: start: 20130610, end: 20130625
  3. METOPROLOL [Concomitant]
     Route: 048
  4. PARACET [Concomitant]
     Route: 048
  5. CENTYL MED KALIUMKLORID [Concomitant]
     Route: 048

REACTIONS (6)
  - Hepatic enzyme increased [Recovering/Resolving]
  - Drooling [Recovered/Resolved]
  - Syncope [Recovered/Resolved]
  - Dizziness [Recovered/Resolved]
  - Sinus tachycardia [Recovered/Resolved]
  - Hyperhidrosis [Unknown]
